FAERS Safety Report 23996850 (Version 2)
Quarter: 2024Q3

REPORT INFORMATION
  Report Type: Report from Study
  Country: KR (occurrence: KR)
  Receive Date: 20240620
  Receipt Date: 20240701
  Transmission Date: 20241016
  Serious: Yes (Hospitalization)
  Sender: CELLTRION
  Company Number: KR-CELLTRION INC.-2024KR011748

PATIENT

DRUGS (24)
  1. CT-P16 [Suspect]
     Active Substance: CT-P16
     Indication: Colorectal cancer metastatic
     Dosage: 354 MG, Q2WEEKS
     Dates: start: 20240425
  2. CT-P16 [Suspect]
     Active Substance: CT-P16
     Dosage: 353.5 MG, Q2WEEKS
     Route: 042
     Dates: start: 20240425, end: 20240604
  3. LEUCOVORIN CALCIUM [Suspect]
     Active Substance: LEUCOVORIN CALCIUM
     Indication: Colorectal cancer metastatic
     Dosage: UNK
     Dates: start: 20230525
  4. LEUCOVORIN CALCIUM [Suspect]
     Active Substance: LEUCOVORIN CALCIUM
     Dosage: UNK
     Dates: start: 20240425
  5. IRINOTECAN HYDROCHLORIDE [Suspect]
     Active Substance: IRINOTECAN HYDROCHLORIDE
     Indication: Colorectal cancer metastatic
     Dosage: UNK
     Dates: start: 20240425
  6. FLUOROURACIL [Suspect]
     Active Substance: FLUOROURACIL
     Indication: Colorectal cancer metastatic
     Dosage: UNK
     Dates: start: 20230505
  7. DIABEX [Concomitant]
     Active Substance: METFORMIN HYDROCHLORIDE
     Indication: Diabetes mellitus
     Dosage: 1000 MG, BID
     Route: 048
     Dates: start: 20231108
  8. GLIMEPID [Concomitant]
     Indication: Diabetes mellitus
     Dosage: 2 MG, BID
     Route: 048
     Dates: start: 20231108
  9. GLEZON [Concomitant]
     Indication: Diabetes mellitus
     Dosage: 15 MG, BID
     Route: 048
     Dates: start: 20240115
  10. FERROUS SULFATE\PROTEASE [Concomitant]
     Active Substance: FERROUS SULFATE\PROTEASE
     Indication: Anaemia
     Dosage: 256 MG, BID
     Route: 048
     Dates: start: 20230608
  11. HARNAL [Concomitant]
     Active Substance: TAMSULOSIN HYDROCHLORIDE
     Indication: Benign prostatic hyperplasia
     Dosage: 0.2 MG, HS
     Route: 048
     Dates: start: 20230608
  12. PANTOPRAZOLE SODIUM [Concomitant]
     Active Substance: PANTOPRAZOLE SODIUM
     Indication: Neutropenic sepsis
     Dosage: 40 MG, QD
     Route: 042
     Dates: start: 20240505, end: 20240506
  13. NESBELL [Concomitant]
     Indication: Anaemia
     Dosage: 120 MICROGRAM, QD (PFS INJ 120)
     Route: 058
     Dates: start: 20240506, end: 20240506
  14. LENOGRASTIM [Concomitant]
     Active Substance: LENOGRASTIM
     Indication: Neutropenic sepsis
     Dosage: 250 MICROGRAM, QD
     Route: 058
     Dates: start: 20240505, end: 20240508
  15. AMINO ACIDS\DEXTROSE\ELECTROLYTES NOS\SOYBEAN OIL [Concomitant]
     Active Substance: AMINO ACIDS\DEXTROSE\ELECTROLYTES NOS\SOYBEAN OIL
     Indication: Neutropenic sepsis
     Dosage: 1477 MILLILITER, QD
     Route: 042
     Dates: start: 20240505, end: 20240507
  16. NORPIN [NOREPINEPHRINE] [Concomitant]
     Indication: Neutropenic sepsis
     Dosage: 4 MILLILITER, QD
     Route: 042
     Dates: start: 20240505, end: 20240509
  17. NORZYME [Concomitant]
     Indication: Prophylaxis
     Dosage: 440 MG, TID
     Route: 048
     Dates: start: 20240506
  18. NORZYME [Concomitant]
     Indication: Dyspepsia
  19. FEXADIN [FENOVERINE] [Concomitant]
     Indication: Prophylaxis against diarrhoea
     Dosage: 100 MG, TID
     Route: 048
     Dates: start: 20240514
  20. MAXIPIME [Concomitant]
     Active Substance: CEFEPIME HYDROCHLORIDE
     Indication: Neutropenic sepsis
     Dosage: 1 G, TID
     Route: 042
     Dates: start: 20240505, end: 20240513
  21. NEULAPEG [Concomitant]
     Indication: Neutropenia
     Dosage: 6 MG, QD
     Route: 058
     Dates: start: 20240519
  22. QUETIAPINE FUMARATE [Concomitant]
     Active Substance: QUETIAPINE FUMARATE
     Indication: Prophylaxis
     Dosage: 12.5 MG, HS
     Route: 048
     Dates: start: 20240506
  23. QUETIAPINE FUMARATE [Concomitant]
     Active Substance: QUETIAPINE FUMARATE
     Indication: Insomnia
  24. STAVIC [Concomitant]
     Indication: Prophylaxis against diarrhoea
     Dosage: 20 MILLILITER, TID
     Route: 048
     Dates: start: 20240518, end: 20240606

REACTIONS (1)
  - Rhabdomyolysis [Recovered/Resolved]

NARRATIVE: CASE EVENT DATE: 20240505
